FAERS Safety Report 19651180 (Version 2)
Quarter: 2021Q3

REPORT INFORMATION
  Report Type: Report from Study
  Country: None (occurrence: US)
  Receive Date: 20210802
  Receipt Date: 20210907
  Transmission Date: 20211014
  Serious: Yes (Hospitalization, Other)
  Sender: FDA-Public Use
  Company Number: US-ABBVIE-21K-163-4012107-00

PATIENT
  Sex: Female

DRUGS (2)
  1. HUMIRA [Suspect]
     Active Substance: ADALIMUMAB
     Indication: RHEUMATOID ARTHRITIS
     Route: 058
  2. COVID?19 VACCINE [Concomitant]
     Indication: COVID-19 IMMUNISATION
     Route: 030

REACTIONS (10)
  - Vocal cord polyp [Unknown]
  - Poor quality sleep [Unknown]
  - Pain in extremity [Unknown]
  - Rheumatoid arthritis [Not Recovered/Not Resolved]
  - Limb injury [Unknown]
  - Haemorrhage [Unknown]
  - Overweight [Unknown]
  - Cast application [Unknown]
  - Contusion [Unknown]
  - Ankylosing spondylitis [Unknown]

NARRATIVE: CASE EVENT DATE: 202107
